FAERS Safety Report 6291746-1 (Version None)
Quarter: 2009Q3

REPORT INFORMATION
  Report Type: 
  Country: None (occurrence: None)
  Receive Date: 20090730
  Receipt Date: 20090727
  Transmission Date: 20100115
  Serious: Yes (Hospitalization)
  Sender: FDA-Public Use
  Company Number: US-AMGEN-STX293884

PATIENT
  Sex: Male

DRUGS (12)
  1. CINACALCET [Suspect]
     Indication: HYPERPARATHYROIDISM SECONDARY
     Route: 048
     Dates: start: 20070807
  2. NOVOLIN N [Concomitant]
  3. PLAVIX [Concomitant]
  4. NIFEDIPINE [Concomitant]
  5. ATENOLOL [Concomitant]
  6. PHOSLO [Concomitant]
  7. ASPIRIN [Concomitant]
  8. LASIX [Concomitant]
  9. LIPITOR [Concomitant]
  10. ISOSORBIDE DINITRATE [Concomitant]
  11. LISINOPRIL [Concomitant]
  12. NEPHRO-CAPS [Concomitant]

REACTIONS (6)
  - ABSCESS NECK [None]
  - BLOOD CHLORIDE DECREASED [None]
  - BLOOD SODIUM DECREASED [None]
  - CERVICAL CORD COMPRESSION [None]
  - EXTRADURAL ABSCESS [None]
  - FLUID OVERLOAD [None]
